FAERS Safety Report 12000966 (Version 2)
Quarter: 2016Q1

REPORT INFORMATION
  Report Type: Spontaneous
  Country: US (occurrence: US)
  Receive Date: 20160204
  Receipt Date: 20160324
  Transmission Date: 20160526
  Serious: Yes (Hospitalization, Other)
  Sender: FDA-Public Use
  Company Number: US-GLAXOSMITHKLINE-US2016012834

PATIENT
  Age: 25 Year
  Sex: Male

DRUGS (7)
  1. DILANTIN [Concomitant]
     Active Substance: PHENYTOIN
  2. LAMICTAL [Suspect]
     Active Substance: LAMOTRIGINE
     Indication: EPILEPSY
     Dosage: 100 MG, BID
     Route: 048
     Dates: start: 201512
  3. CLONAZEPAM. [Concomitant]
     Active Substance: CLONAZEPAM
  4. METOPROLOL. [Concomitant]
     Active Substance: METOPROLOL
  5. LAMICTAL [Suspect]
     Active Substance: LAMOTRIGINE
     Indication: SEIZURE
     Dosage: 100 MG, BID
     Route: 048
     Dates: start: 201511
  6. DEPAKOTE [Concomitant]
     Active Substance: DIVALPROEX SODIUM
  7. PHENYTOIN. [Suspect]
     Active Substance: PHENYTOIN
     Indication: EPILEPSY
     Dosage: 300 MG, QD
     Dates: start: 201509, end: 201602

REACTIONS (5)
  - Nervousness [Recovering/Resolving]
  - Seizure [Not Recovered/Not Resolved]
  - Panic attack [Recovering/Resolving]
  - Rash [Recovered/Resolved with Sequelae]
  - Drug ineffective [Unknown]

NARRATIVE: CASE EVENT DATE: 201512
